FAERS Safety Report 8900620 (Version 3)
Quarter: 2019Q3

REPORT INFORMATION
  Report Type: Report from Study
  Country: US (occurrence: US)
  Receive Date: 20121109
  Receipt Date: 20190713
  Transmission Date: 20191005
  Serious: Yes (Hospitalization)
  Sender: FDA-Public Use
  Company Number: US-UCBSA-069987

PATIENT
  Age: 51 Year
  Sex: Male
  Weight: 81 kg

DRUGS (15)
  1. LIPITOR [Concomitant]
     Active Substance: ATORVASTATIN CALCIUM
     Dosage: QHS
     Route: 048
  2. DICYCLOMINE HCL [Concomitant]
     Active Substance: DICYCLOMINE HYDROCHLORIDE
     Dosage: 10 MG, ONCE DAILY (QD)
     Route: 048
  3. MSM [Concomitant]
     Active Substance: DIMETHYL SULFONE
     Dosage: DAILY DOSE: 1500 MG
     Route: 048
  4. OMEGA 3 FATTY ACIDS [Concomitant]
     Active Substance: OMEGA-3 FATTY ACIDS
     Dosage: DAILY DOSE: 2000 MG
     Route: 048
  5. HYDROCODONE-ACETAMINOPHEN [Concomitant]
     Active Substance: ACETAMINOPHEN\HYDROCODONE
     Dosage: 1 TABLET Q4H PRN
     Route: 048
  6. CARBATROL ER [Concomitant]
     Dosage: 300 MG, 2X/DAY (BID)
     Route: 048
  7. PERCOCET [Concomitant]
     Active Substance: ACETAMINOPHEN\OXYCODONE HYDROCHLORIDE
  8. RANITIDINE HCL [Concomitant]
     Active Substance: RANITIDINE HYDROCHLORIDE
     Dosage: 150 MG, 2X/DAY (BID)
     Route: 048
  9. GLUCOSAMINE HYDROCHLORIDE [Concomitant]
     Active Substance: GLUCOSAMINE HYDROCHLORIDE
     Dosage: DAILY DOSE: 3000 MG
     Route: 048
  10. DESYREL [Concomitant]
     Active Substance: TRAZODONE HYDROCHLORIDE
     Dosage: QHS
     Route: 048
  11. NIACIN. [Concomitant]
     Active Substance: NIACIN
     Dosage: DAILY DOSE: 500 MG
     Route: 048
  12. CALCIUM CARBONATE, MAGNESIUM, ZINC, VITAMIN D3 [Concomitant]
     Dosage: 1 DF, 3X/DAY (TID)
     Route: 048
  13. CERTOLIZUMAB PEGOL VS PLACEBO [Suspect]
     Active Substance: CERTOLIZUMAB PEGOL
     Indication: ANKYLOSING SPONDYLITIS
     Dosage: SYRINGE
     Route: 058
     Dates: end: 2012
  14. CALCIUM CARBONATE, MAGNESIUM, ZINC, VITAMIN D3 [Concomitant]
     Dosage: 1 DF, 3X/DAY (TID)
     Route: 048
  15. METOPROLOL TARTRATE. [Concomitant]
     Active Substance: METOPROLOL TARTRATE
     Dosage: DAILY DOSE: 50 MG
     Route: 048

REACTIONS (2)
  - Colitis [Recovering/Resolving]
  - Pneumonia legionella [Recovering/Resolving]

NARRATIVE: CASE EVENT DATE: 20121008
